FAERS Safety Report 10646485 (Version 1)
Quarter: 2014Q4

REPORT INFORMATION
  Report Type: Spontaneous
  Country: US (occurrence: None)
  Receive Date: 20141205
  Receipt Date: 20141205
  Transmission Date: 20150529
  Serious: No
  Sender: FDA-Public Use
  Company Number: 163-POMAL-14090034

PATIENT
  Age: 61 Year
  Sex: Female
  Weight: 78.5 kg

DRUGS (6)
  1. DEXAMETHASONE (DEXAMETHASONE) (UNKNOWN) [Concomitant]
     Active Substance: DEXAMETHASONE
  2. ECOTRIN (ACETYLSALICYLIC ACID) (UNKNOWN) [Concomitant]
  3. POMALYST [Suspect]
     Active Substance: POMALIDOMIDE
     Indication: PLASMA CELL MYELOMA
     Dosage: 21 IN 28 D, PO
     Route: 048
     Dates: start: 20140730
  4. STOOL SOFTNER (DOCUSATE SODIUM) (UNKNOWN) [Concomitant]
  5. ADVIL (IBUPROFEN) (UNKNOWN) [Concomitant]
  6. PRILOSEC (OMEPRAZOLE) (UNKNOWN) [Concomitant]

REACTIONS (1)
  - Toothache [None]

NARRATIVE: CASE EVENT DATE: 201408
